FAERS Safety Report 7550679-0 (Version None)
Quarter: 2011Q2

REPORT INFORMATION
  Report Type: 
  Country: None (occurrence: None)
  Receive Date: 20110616
  Receipt Date: 20110608
  Transmission Date: 20111010
  Serious: Yes (Death)
  Sender: FDA-Public Use
  Company Number: US-CELGENEUS-163-20785-11052077

PATIENT
  Sex: Male
  Weight: 68.1 kg

DRUGS (1)
  1. REVLIMID [Suspect]
     Indication: MULTIPLE MYELOMA
     Dosage: 10 MILLIGRAM
     Route: 048
     Dates: start: 20100101, end: 20100101

REACTIONS (3)
  - RENAL FAILURE [None]
  - BLOOD COUNT ABNORMAL [None]
  - MULTIPLE MYELOMA [None]
